FAERS Safety Report 13278825 (Version 2)
Quarter: 2017Q1

REPORT INFORMATION
  Report Type: Spontaneous
  Country: US (occurrence: US)
  Receive Date: 20170228
  Receipt Date: 20170306
  Transmission Date: 20170428
  Serious: Yes (Death)
  Sender: FDA-Public Use
  Company Number: PHHY2017US026874

PATIENT
  Age: 13 Year
  Sex: Female

DRUGS (1)
  1. BUPROPION. [Suspect]
     Active Substance: BUPROPION
     Indication: SUICIDE ATTEMPT
     Dosage: 21000 MG
     Route: 065

REACTIONS (6)
  - Suicide attempt [Fatal]
  - Brain oedema [Fatal]
  - Coma [Fatal]
  - Electroencephalogram abnormal [Fatal]
  - Areflexia [Fatal]
  - Overdose [Fatal]
